FAERS Safety Report 5771936-4 (Version None)
Quarter: 2008Q2

REPORT INFORMATION
  Report Type: 
  Country: None (occurrence: None)
  Receive Date: 20080612
  Receipt Date: 20080612
  Transmission Date: 20081010
  Serious: No
  Sender: FDA-Public Use
  Company Number: None

PATIENT
  Sex: Female
  Weight: 57.6068 kg

DRUGS (4)
  1. REMICADE [Suspect]
     Indication: RHEUMATOID ARTHRITIS
     Dosage: 300MG Q8 EEKS IV DRIP
     Route: 041
     Dates: start: 20080104, end: 20080605
  2. METHOTREXATE [Concomitant]
  3. FOLIC ACID [Concomitant]
  4. TYLENOL [Concomitant]

REACTIONS (3)
  - CHEST DISCOMFORT [None]
  - HYPERTENSION [None]
  - PHARYNGEAL MASS [None]
